FAERS Safety Report 6703166-3 (Version None)
Quarter: 2010Q2

REPORT INFORMATION
  Report Type: 
  Country: None (occurrence: None)
  Receive Date: 20100430
  Receipt Date: 20100422
  Transmission Date: 20101027
  Serious: No
  Sender: FDA-Public Use
  Company Number: US-BIOGENIDEC-2010BI013541

PATIENT
  Sex: Female

DRUGS (1)
  1. AVONEX [Suspect]
     Indication: MULTIPLE SCLEROSIS

REACTIONS (1)
  - SPEECH DISORDER [None]
